FAERS Safety Report 6506030-8 (Version None)
Quarter: 2009Q4

REPORT INFORMATION
  Report Type: 
  Country: None (occurrence: None)
  Receive Date: 20091217
  Receipt Date: 20091217
  Transmission Date: 20100525
  Serious: Yes (Other)
  Sender: FDA-Public Use
  Company Number: None

PATIENT
  Age: 31 Year
  Sex: Female

DRUGS (1)
  1. UNKNOWN ANESTHESIA UNKNOWN UNKNOWN [Suspect]
     Indication: ANAESTHESIA
     Dates: start: 20091019, end: 20091019

REACTIONS (4)
  - BLOOD PRESSURE DECREASED [None]
  - BLOOD PRESSURE FLUCTUATION [None]
  - ERYTHEMA [None]
  - FACE OEDEMA [None]
